FAERS Safety Report 5328305-0 (Version None)
Quarter: 2007Q2

REPORT INFORMATION
  Report Type: 
  Country: None (occurrence: None)
  Receive Date: 20070518
  Receipt Date: 20070508
  Transmission Date: 20071010
  Serious: Yes (Hospitalization, Other)
  Sender: FDA-Public Use
  Company Number: GB-JNJFOC-20070502296

PATIENT
  Sex: Female
  Weight: 60 kg

DRUGS (7)
  1. REMICADE [Suspect]
     Indication: RHEUMATOID ARTHRITIS
  2. PREDNISOLONE [Concomitant]
  3. AMITRIPTILINE [Concomitant]
  4. CO-DYDRAMOL [Concomitant]
  5. FOSAMAX [Concomitant]
  6. PLAQUENIL [Concomitant]
  7. ZOPICLONE [Concomitant]

REACTIONS (1)
  - BASAL CELL CARCINOMA [None]
